FAERS Safety Report 11561075 (Version 3)
Quarter: 2015Q4

REPORT INFORMATION
  Report Type: Spontaneous
  Country: BR (occurrence: BR)
  Receive Date: 20150928
  Receipt Date: 20151005
  Transmission Date: 20160304
  Serious: Yes (Other)
  Sender: FDA-Public Use
  Company Number: PHHY2015BR114577

PATIENT
  Sex: Female
  Weight: 74 kg

DRUGS (8)
  1. EXELON [Suspect]
     Active Substance: RIVASTIGMINE TARTRATE
     Indication: PRODUCT USED FOR UNKNOWN INDICATION
     Dosage: UNK
     Route: 048
  2. EXELON PATCH [Suspect]
     Active Substance: RIVASTIGMINE
     Dosage: 9.5 MG, QD (ONE PATCH 18 MG/10CM2,DAILY)ONE DAY PATCH 10,OTHER DAY PATCH 5/PATCH 5 TWO DAYS IN A ROW
     Route: 062
  3. PROLOPA [Concomitant]
     Active Substance: BENSERAZIDE\LEVODOPA
     Indication: PRODUCT USED FOR UNKNOWN INDICATION
     Dosage: UNK
     Route: 065
  4. EXELON PATCH [Suspect]
     Active Substance: RIVASTIGMINE
     Dosage: 2 DF, QD (TWO PATCHES 9MG/5 CM2,DAILY)ONE DAY PATCH 10,OTHER DAY TWO PATCH 5/TWO PATCH 5 FOR TWO DAY
     Route: 062
  5. EXELON PATCH [Suspect]
     Active Substance: RIVASTIGMINE
     Indication: DEMENTIA
     Dosage: 4.6 MG (PATCH 9 MG / 5 CM2)
     Route: 062
     Dates: start: 2007
  6. CARBIDOPA. [Concomitant]
     Active Substance: CARBIDOPA
     Indication: PRODUCT USED FOR UNKNOWN INDICATION
     Dosage: UNK
     Route: 065
  7. LEVEDOPA [Concomitant]
     Indication: PRODUCT USED FOR UNKNOWN INDICATION
     Dosage: UNK
     Route: 065
  8. EXELON PATCH [Suspect]
     Active Substance: RIVASTIGMINE
     Indication: DEMENTIA WITH LEWY BODIES
     Dosage: 9.5 MG (PATCH 18 MG / 10 CM2)
     Route: 062

REACTIONS (9)
  - Hypotension [Unknown]
  - Insomnia [Unknown]
  - Aggression [Unknown]
  - Restlessness [Unknown]
  - Nausea [Unknown]
  - Vomiting [Unknown]
  - Schizophrenia [Unknown]
  - Dysphonia [Unknown]
  - Off label use [Unknown]
